FAERS Safety Report 7693539-7 (Version None)
Quarter: 2011Q3

REPORT INFORMATION
  Report Type: 
  Country: None (occurrence: None)
  Receive Date: 20110819
  Receipt Date: 20110808
  Transmission Date: 20111222
  Serious: No
  Sender: FDA-Public Use
  Company Number: US-B.I. PHARMACEUTICALS,INC./RIDGEFIELD-2011-BP-19460BP

PATIENT
  Sex: Male

DRUGS (2)
  1. PRADAXA [Suspect]
     Indication: HEART RATE IRREGULAR
     Dosage: 300 MG
     Route: 048
     Dates: start: 20110708
  2. BOTOX [Concomitant]
     Indication: MIGRAINE
     Route: 030
     Dates: start: 20110708

REACTIONS (3)
  - SKIN DISCOLOURATION [None]
  - JOINT SWELLING [None]
  - HYPOAESTHESIA [None]
